FAERS Safety Report 25383307 (Version 1)
Quarter: 2025Q2

REPORT INFORMATION
  Report Type: Spontaneous
  Country: US (occurrence: US)
  Receive Date: 20250602
  Receipt Date: 20250602
  Transmission Date: 20250717
  Serious: Yes (Other)
  Sender: AUROBINDO
  Company Number: US-AUROBINDO-AUR-APL-2022-047541

PATIENT
  Age: 6 Year
  Sex: Male

DRUGS (3)
  1. PREDNISONE [Suspect]
     Active Substance: PREDNISONE
     Indication: Fibrodysplasia ossificans progressiva
     Route: 065
  2. IMATINIB [Suspect]
     Active Substance: IMATINIB
     Indication: Fibrodysplasia ossificans progressiva
     Dosage: 340 MILLIGRAM/SQ. METER, ONCE A DAY
     Route: 048
  3. PALOVAROTENE [Concomitant]
     Active Substance: PALOVAROTENE
     Indication: Fibrodysplasia ossificans progressiva
     Route: 065

REACTIONS (3)
  - Drug ineffective [Unknown]
  - Dyspepsia [Unknown]
  - Off label use [Unknown]
